FAERS Safety Report 8780430 (Version 2)
Quarter: 2012Q4

REPORT INFORMATION
  Report Type: Spontaneous
  Country: JP (occurrence: None)
  Receive Date: 20120830
  Receipt Date: 20120913
  Transmission Date: 20130627
  Serious: Yes (Other)
  Sender: FDA-Public Use
  Company Number: TPA2012A01286

PATIENT
  Age: 88 Year
  Sex: Female

DRUGS (16)
  1. FEBURIC (FEBUXOSTAT) [Suspect]
     Indication: HYPERURICAEMIA
     Route: 048
     Dates: start: 20111025, end: 20120229
  2. ALDACTONE (SPIRONOLACTONE) [Concomitant]
  3. PLAVIX (CLOPIDOGRE) [Concomitant]
  4. MICARDIS (TELMISARTAN) [Concomitant]
  5. ADALAT-CR (NIFEDIPINE) [Concomitant]
  6. DOGMATYL (SULPIRIDE) [Concomitant]
  7. SERMION (NICERGOLINE) [Concomitant]
  8. OPALMON (LIMAPROST) [Concomitant]
  9. URSO (URSODEOXYCHOLIC ACID) [Concomitant]
  10. LACTULOSE (LACTULOSE) [Concomitant]
  11. GASMOTIN (MOSAPRIDE CITRATE) [Concomitant]
  12. LIVACT (LEUCINE, VALINE, ISOLEUCINE) [Concomitant]
  13. PARIET (RABEPRAZOLE SODIUM) [Concomitant]
  14. CELECOX (CELECOXIS) [Concomitant]
  15. MYSLEE (ZOLPIDEM TARTRATE) [Concomitant]
  16. ALLEGRA (FEXOFENADINE) [Concomitant]

REACTIONS (2)
  - Hyperkalaemia [None]
  - Renal impairment [None]
